FAERS Safety Report 5516476-2 (Version None)
Quarter: 2007Q4

REPORT INFORMATION
  Report Type: 
  Country: None (occurrence: None)
  Receive Date: 20071114
  Receipt Date: 20070302
  Transmission Date: 20080405
  Serious: No
  Sender: FDA-Public Use
  Company Number: A0641439A

PATIENT
  Age: 48 Year
  Sex: Female

DRUGS (2)
  1. COMMIT [Suspect]
     Dates: start: 20070228, end: 20070228
  2. BENADRYL [Concomitant]

REACTIONS (3)
  - NERVOUSNESS [None]
  - PALPITATIONS [None]
  - VOMITING [None]
